FAERS Safety Report 6802747-6 (Version None)
Quarter: 2010Q2

REPORT INFORMATION
  Report Type: 
  Country: None (occurrence: None)
  Receive Date: 20100628
  Receipt Date: 20100617
  Transmission Date: 20101027
  Serious: Yes (Hospitalization, Disabling)
  Sender: FDA-Public Use
  Company Number: BE-ASTRAZENECA-2009AC00691

PATIENT
  Age: 10228 Day
  Sex: Male

DRUGS (6)
  1. CRESTOR [Suspect]
     Route: 048
     Dates: start: 20081031
  2. LIPANTHYL [Interacting]
     Route: 048
     Dates: start: 20090501, end: 20090525
  3. PAROXETINE [Interacting]
     Indication: DEPRESSION
     Route: 048
     Dates: start: 20040101
  4. PAROXETINE [Interacting]
     Indication: EPILEPSY
     Route: 048
     Dates: start: 20040101
  5. PAROXETINE [Interacting]
     Indication: HYPERVENTILATION
     Route: 048
     Dates: start: 20040101
  6. XANAX [Concomitant]

REACTIONS (2)
  - CONVERSION DISORDER [None]
  - DRUG INTERACTION [None]
